FAERS Safety Report 5054070-0 (Version None)
Quarter: 2006Q2

REPORT INFORMATION
  Report Type: 
  Country: None (occurrence: None)
  Receive Date: 20060616
  Receipt Date: 20050420
  Transmission Date: 20061013
  Serious: Yes (Hospitalization)
  Sender: FDA-Public Use
  Company Number: 200513358US

PATIENT
  Age: 83 Year
  Sex: Female

DRUGS (2)
  1. INSULIN GLARGINE (LANTUS) SLUTION FOR INJECTION [Suspect]
     Indication: DIABETES MELLITUS
     Dosage: 10 U HS
  2. NOVOLOG [Concomitant]

REACTIONS (1)
  - HYPERGLYCAEMIA [None]
